FAERS Safety Report 13850739 (Version 1)
Quarter: 2017Q3

REPORT INFORMATION
  Report Type: Report from Study
  Country: US (occurrence: US)
  Receive Date: 20170810
  Receipt Date: 20170810
  Transmission Date: 20171127
  Serious: Yes (Other)
  Sender: FDA-Public Use
  Company Number: US-UCBSA-2017020040

PATIENT
  Sex: Female

DRUGS (3)
  1. TOPAMAX [Concomitant]
     Active Substance: TOPIRAMATE
     Indication: PRODUCT USED FOR UNKNOWN INDICATION
  2. LEVETIRACETAM. [Suspect]
     Active Substance: LEVETIRACETAM
     Indication: POLYCYSTIC OVARIES
     Dosage: UNK
  3. LEVETIRACETAM. [Suspect]
     Active Substance: LEVETIRACETAM
     Indication: OFF LABEL USE

REACTIONS (5)
  - Generalised tonic-clonic seizure [Unknown]
  - Petit mal epilepsy [Unknown]
  - Pregnancy [Unknown]
  - Migraine [Unknown]
  - Off label use [Unknown]
